APPROVED DRUG PRODUCT: KETOCONAZOLE
Active Ingredient: KETOCONAZOLE
Strength: 2%
Dosage Form/Route: AEROSOL, FOAM;TOPICAL
Application: A091550 | Product #001 | TE Code: AB
Applicant: PADAGIS ISRAEL PHARMACEUTICALS LTD
Approved: Aug 25, 2011 | RLD: No | RS: No | Type: RX